FAERS Safety Report 25655785 (Version 1)
Quarter: 2025Q3

REPORT INFORMATION
  Report Type: Spontaneous
  Country: CN (occurrence: CN)
  Receive Date: 20250807
  Receipt Date: 20250807
  Transmission Date: 20251020
  Serious: Yes (Other)
  Sender: AMGEN
  Company Number: CN-AMGEN-CHNSP2025153208

PATIENT
  Age: 3 Year
  Sex: Male

DRUGS (3)
  1. BLINATUMOMAB [Suspect]
     Active Substance: BLINATUMOMAB
     Indication: Precursor B-lymphoblastic lymphoma stage IV
     Route: 065
     Dates: start: 20220506
  2. MERCAPTOPURINE [Concomitant]
     Active Substance: MERCAPTOPURINE
     Indication: Precursor B-lymphoblastic lymphoma stage IV
  3. METHOTREXATE [Concomitant]
     Active Substance: METHOTREXATE
     Indication: Precursor B-lymphoblastic lymphoma stage IV

REACTIONS (3)
  - Graft versus host disease in skin [Recovering/Resolving]
  - Cytomegalovirus viraemia [Recovering/Resolving]
  - Graft versus host disease in liver [Recovering/Resolving]

NARRATIVE: CASE EVENT DATE: 20220101
